FAERS Safety Report 25420466 (Version 3)
Quarter: 2025Q3

REPORT INFORMATION
  Report Type: Spontaneous
  Country: JP (occurrence: JP)
  Receive Date: 20250611
  Receipt Date: 20250702
  Transmission Date: 20251021
  Serious: Yes (Hospitalization, Other)
  Sender: TAKEDA
  Company Number: JP-TAKEDA-2025TJP005636

PATIENT
  Age: 4 Year
  Sex: Female

DRUGS (5)
  1. VPRIV [Suspect]
     Active Substance: VELAGLUCERASE ALFA
     Indication: Gaucher^s disease
     Dosage: 2 VIALS, EVERY 2 WEEKS (DOSAGE DESCRIPTION)
  2. VPRIV [Suspect]
     Active Substance: VELAGLUCERASE ALFA
     Dosage: 2 VIALS, EVERY 2 WEEKS (DOSAGE DESCRIPTION)
     Dates: start: 20240607, end: 20240607
  3. VPRIV [Suspect]
     Active Substance: VELAGLUCERASE ALFA
     Dosage: 2 VIALS, EVERY 2 WEEKS (DOSAGE DESCRIPTION)
     Dates: start: 20240621, end: 20241224
  4. VPRIV [Suspect]
     Active Substance: VELAGLUCERASE ALFA
     Dosage: 2 VIALS, EVERY 2 WEEKS (DOSAGE DESCRIPTION)
     Dates: start: 20250107, end: 20250612
  5. BACLOFEN [Concomitant]
     Active Substance: BACLOFEN
     Indication: Muscle spasms

REACTIONS (5)
  - Decubitus ulcer [Unknown]
  - Dystonia [Recovered/Resolved]
  - Vascular device occlusion [Recovered/Resolved]
  - Vascular device infection [Recovered/Resolved]
  - Muscle tightness [Recovered/Resolved]

NARRATIVE: CASE EVENT DATE: 20240718
